FAERS Safety Report 8138096-6 (Version None)
Quarter: 2012Q1

REPORT INFORMATION
  Report Type: 
  Country: None (occurrence: None)
  Receive Date: 20120215
  Receipt Date: 20120215
  Transmission Date: 20120608
  Serious: Yes (Hospitalization)
  Sender: FDA-Public Use
  Company Number: None

PATIENT
  Age: 82 Year
  Sex: Female
  Weight: 74.2 kg

DRUGS (4)
  1. PRADAXA [Suspect]
     Indication: CEREBROVASCULAR ACCIDENT PROPHYLAXIS
     Dosage: 150 MG
     Route: 048
     Dates: start: 20120107, end: 20120118
  2. PRADAXA [Suspect]
     Indication: EMBOLISM
     Dosage: 150 MG
     Route: 048
     Dates: start: 20120107, end: 20120118
  3. PRADAXA [Suspect]
     Indication: ATRIAL FIBRILLATION
     Dosage: 150 MG
     Route: 048
     Dates: start: 20120107, end: 20120118
  4. DICLOFENAC [Concomitant]
     Route: 048

REACTIONS (2)
  - DYSPHAGIA [None]
  - OESOPHAGITIS [None]
